FAERS Safety Report 16533414 (Version 1)
Quarter: 2019Q3

REPORT INFORMATION
  Report Type: Spontaneous
  Country: US (occurrence: US)
  Receive Date: 20190705
  Receipt Date: 20190705
  Transmission Date: 20191004
  Serious: No
  Sender: FDA-Public Use
  Company Number: US-PFIZER INC-2019286127

PATIENT
  Age: 81 Year
  Sex: Female
  Weight: 86.64 kg

DRUGS (3)
  1. SYMBICORT [Concomitant]
     Active Substance: BUDESONIDE\FORMOTEROL FUMARATE DIHYDRATE
     Indication: CHRONIC OBSTRUCTIVE PULMONARY DISEASE
     Dosage: UNK (160-4.5)
     Route: 055
  2. PREMARIN [Suspect]
     Active Substance: ESTROGENS, CONJUGATED
     Indication: VULVOVAGINAL DRYNESS
     Dosage: 0.625 MG, 2X/WEEK (TWICE A WEEK, ON TUESDAY AND FRIDAY)
     Route: 067
     Dates: start: 20190111
  3. SYMBICORT [Concomitant]
     Active Substance: BUDESONIDE\FORMOTEROL FUMARATE DIHYDRATE
     Dosage: UNK, 2X/DAY (80-4.5, 1 INHALATION, TWICE A DAY)
     Route: 055

REACTIONS (5)
  - Blood urine present [Unknown]
  - Drug ineffective [Unknown]
  - Vulvovaginal pain [Unknown]
  - Cystitis [Unknown]
  - Bladder discomfort [Unknown]

NARRATIVE: CASE EVENT DATE: 20190618
